FAERS Safety Report 5059061-1 (Version None)
Quarter: 2006Q3

REPORT INFORMATION
  Report Type: 
  Country: None (occurrence: None)
  Receive Date: 20060719
  Receipt Date: 20060704
  Transmission Date: 20061208
  Serious: Yes (Hospitalization, Other)
  Sender: FDA-Public Use
  Company Number: PHBS2006US09994

PATIENT
  Age: 65 Year
  Sex: Male

DRUGS (3)
  1. CYCLOSPORINE [Suspect]
     Indication: HEART TRANSPLANT
     Dosage: 100 MG, BID, UNK
  2. PREDNISONE [Suspect]
     Indication: HEART TRANSPLANT
     Dosage: 5 MG/D, UNK
  3. MYCOPHENOLATE MOFETIL [Suspect]
     Indication: HEART TRANSPLANT
     Dosage: 1250 MG, BID, UNK

REACTIONS (10)
  - CYTOMEGALOVIRUS ANTIGEN POSITIVE [None]
  - GASTROENTERITIS CRYPTOSPORIDIAL [None]
  - HAEMODIALYSIS [None]
  - HEART TRANSPLANT REJECTION [None]
  - LEPROMATOUS LEPROSY [None]
  - LOCALISED OEDEMA [None]
  - RENAL FAILURE [None]
  - RENAL TRANSPLANT [None]
  - SENSORY LOSS [None]
  - THERAPEUTIC AGENT TOXICITY [None]
